FAERS Safety Report 4734793-0 (Version None)
Quarter: 2005Q3

REPORT INFORMATION
  Report Type: 
  Country: None (occurrence: None)
  Receive Date: 20050802
  Receipt Date: 20050721
  Transmission Date: 20060218
  Serious: Yes (Death)
  Sender: FDA-Public Use
  Company Number: 2005106138

PATIENT
  Age: 48 Year
  Sex: Male
  Weight: 185 kg

DRUGS (1)
  1. FRAGMIN [Suspect]
     Indication: ILL-DEFINED DISORDER
     Dosage: 5000 I.U. (5000M I.U., 1 IN 1 D)
     Dates: start: 20050713

REACTIONS (1)
  - PULMONARY EMBOLISM [None]
